FAERS Safety Report 16400204 (Version 1)
Quarter: 2019Q2

REPORT INFORMATION
  Report Type: Spontaneous
  Country: US (occurrence: US)
  Receive Date: 20190606
  Receipt Date: 20190606
  Transmission Date: 20190711
  Serious: No
  Sender: FDA-Public Use
  Company Number: US-ALLERGAN-1910777US

PATIENT
  Sex: Male

DRUGS (2)
  1. KYBELLA [Suspect]
     Active Substance: DEOXYCHOLIC ACID
     Dosage: UNK UNK, SINGLE
     Route: 058
     Dates: start: 20190119, end: 20190119
  2. KYBELLA [Suspect]
     Active Substance: DEOXYCHOLIC ACID
     Indication: FAT TISSUE INCREASED
     Dosage: UNK UNK, SINGLE
     Route: 058
     Dates: start: 20190215, end: 20190215

REACTIONS (2)
  - Injection site mass [Unknown]
  - Injection site cyst [Unknown]
